FAERS Safety Report 7825053-X (Version None)
Quarter: 2011Q4

REPORT INFORMATION
  Report Type: 
  Country: None (occurrence: None)
  Receive Date: 20111019
  Receipt Date: 20110429
  Transmission Date: 20120403
  Serious: No
  Sender: FDA-Public Use
  Company Number: US-BRISTOL-MYERS SQUIBB COMPANY-15708456

PATIENT
  Sex: Male

DRUGS (1)
  1. AVALIDE [Suspect]
     Dosage: 1 DF = 300/12.5 MG,STARTED 4-5 YEARS AGO

REACTIONS (4)
  - BONE PAIN [None]
  - DYSARTHRIA [None]
  - PAIN [None]
  - DIZZINESS [None]
